FAERS Safety Report 12735227 (Version 1)
Quarter: 2016Q3

REPORT INFORMATION
  Report Type: Spontaneous
  Country: CH (occurrence: CH)
  Receive Date: 20160913
  Receipt Date: 20160913
  Transmission Date: 20161109
  Serious: Yes (Hospitalization)
  Sender: FDA-Public Use
  Company Number: CH-ORION CORPORATION ORION PHARMA-16_00001898

PATIENT
  Age: 44 Year
  Sex: Female

DRUGS (7)
  1. VINCRISTIN TEVA [Suspect]
     Active Substance: VINCRISTINE
     Indication: PRECURSOR B-LYMPHOBLASTIC LYMPHOMA STAGE IV
     Dosage: ON DAY 1
     Route: 041
     Dates: start: 201510, end: 201608
  2. PANTOZOL [Interacting]
     Active Substance: PANTOPRAZOLE SODIUM
     Route: 048
     Dates: end: 201608
  3. VALACICLOVIR SANDOZ [Concomitant]
     Active Substance: VALACYCLOVIR HYDROCHLORIDE
     Route: 048
  4. BACTRIM [Interacting]
     Active Substance: SULFAMETHOXAZOLE\TRIMETHOPRIM
     Dosage: STRENGTH: 800/160 MG
     Route: 048
     Dates: end: 201608
  5. PURINETHOL [Interacting]
     Active Substance: MERCAPTOPURINE
     Indication: PRECURSOR B-LYMPHOBLASTIC LYMPHOMA STAGE IV
     Route: 048
     Dates: start: 201510, end: 201608
  6. METHOTREXATE. [Suspect]
     Active Substance: METHOTREXATE
     Indication: PRECURSOR B-LYMPHOBLASTIC LYMPHOMA STAGE IV
     Dosage: STRENGTH: 25 MG/ML
     Route: 041
     Dates: start: 201510, end: 201608
  7. FLUCONAZOL SANDOZ [Concomitant]
     Active Substance: FLUCONAZOLE
     Route: 048

REACTIONS (6)
  - Drug interaction [Unknown]
  - Migraine [Unknown]
  - Vomiting [Unknown]
  - Pancytopenia [Recovered/Resolved]
  - Bone marrow toxicity [Recovered/Resolved]
  - Headache [Unknown]

NARRATIVE: CASE EVENT DATE: 2016
